FAERS Safety Report 24364427 (Version 1)
Quarter: 2024Q3

REPORT INFORMATION
  Report Type: Spontaneous
  Country: US (occurrence: US)
  Receive Date: 20240926
  Receipt Date: 20240926
  Transmission Date: 20241017
  Serious: No
  Sender: ENDO
  Company Number: ENDG23-05208

PATIENT
  Sex: Male

DRUGS (3)
  1. BENZTROPINE MESYLATE [Suspect]
     Active Substance: BENZTROPINE MESYLATE
     Indication: Schizophrenia
     Dosage: 2 MILLIGRAM, UNKNOWN
     Route: 048
     Dates: start: 2023
  2. BENZTROPINE MESYLATE [Suspect]
     Active Substance: BENZTROPINE MESYLATE
     Dosage: UNK UNKNOWN, UNKNOWN
     Route: 065
     Dates: start: 2021
  3. BENZTROPINE MESYLATE [Suspect]
     Active Substance: BENZTROPINE MESYLATE
     Dosage: UNK UNKNOWN, UNKNOWN
     Route: 065

REACTIONS (2)
  - Rash [Unknown]
  - Off label use [Recovered/Resolved]

NARRATIVE: CASE EVENT DATE: 20210101
